FAERS Safety Report 14441280 (Version 2)
Quarter: 2018Q1

REPORT INFORMATION
  Report Type: Spontaneous
  Country: HK (occurrence: HK)
  Receive Date: 20180125
  Receipt Date: 20180309
  Transmission Date: 20180509
  Serious: Yes (Other)
  Sender: FDA-Public Use
  Company Number: HK-009507513-1801HKG007945

PATIENT
  Age: 87 Year
  Sex: Male

DRUGS (2)
  1. KEYTRUDA [Suspect]
     Active Substance: PEMBROLIZUMAB
     Indication: BRONCHIAL CARCINOMA
     Dosage: UNK UNK, Q3W
     Dates: start: 201605, end: 201708
  2. LEVOTHYROXINE SODIUM. [Concomitant]
     Active Substance: LEVOTHYROXINE SODIUM

REACTIONS (3)
  - Dermatitis [Recovered/Resolved]
  - T-cell lymphoma [Recovering/Resolving]
  - Inability to afford medication [Unknown]

NARRATIVE: CASE EVENT DATE: 201702
